FAERS Safety Report 7864443-6 (Version None)
Quarter: 2011Q4

REPORT INFORMATION
  Report Type: 
  Country: None (occurrence: None)
  Receive Date: 20111028
  Receipt Date: 20111026
  Transmission Date: 20120403
  Serious: Yes (Death, Hospitalization)
  Sender: FDA-Public Use
  Company Number: PHEH2011US06048

PATIENT
  Sex: Male
  Weight: 83.9 kg

DRUGS (2)
  1. EXJADE [Suspect]
     Indication: MYELOFIBROSIS
     Dosage: 2000 MG, DAILY
     Dates: start: 20090318
  2. TOPROL-XL [Concomitant]
     Dosage: 25 MG, QD
     Route: 048

REACTIONS (2)
  - DEATH [None]
  - MYELOFIBROSIS [None]
